FAERS Safety Report 15197286 (Version 1)
Quarter: 2018Q3

REPORT INFORMATION
  Report Type: Spontaneous
  Country: US (occurrence: US)
  Receive Date: 20180626
  Receipt Date: 20180626
  Transmission Date: 20181010
  Serious: Yes (Other)
  Sender: FDA-Public Use
  Company Number: None

PATIENT
  Age: 47 Year
  Sex: Female
  Weight: 58.97 kg

DRUGS (1)
  1. MIRENA [Suspect]
     Active Substance: LEVONORGESTREL
     Dates: start: 20171208, end: 20180611

REACTIONS (4)
  - Pain [None]
  - Back pain [None]
  - Arthropathy [None]
  - Muscular weakness [None]

NARRATIVE: CASE EVENT DATE: 20180108
